FAERS Safety Report 22136333 (Version 1)
Quarter: 2023Q1

REPORT INFORMATION
  Report Type: Spontaneous
  Country: US (occurrence: US)
  Receive Date: 20230324
  Receipt Date: 20230324
  Transmission Date: 20230418
  Serious: Yes (Other)
  Sender: FDA-Public Use
  Company Number: US-002147023-NVSC2023US064548

PATIENT
  Age: 52 Year
  Sex: Male

DRUGS (1)
  1. BIVALIRUDIN [Suspect]
     Active Substance: BIVALIRUDIN
     Indication: Anticoagulant therapy
     Dosage: UNK (40 PERCENT MORE THAN EXPECTED)
     Route: 065

REACTIONS (2)
  - Coagulation time prolonged [Unknown]
  - Drug resistance [Unknown]
